FAERS Safety Report 23362690 (Version 1)
Quarter: 2024Q1

REPORT INFORMATION
  Report Type: Spontaneous
  Country: US (occurrence: US)
  Receive Date: 20240103
  Receipt Date: 20240103
  Transmission Date: 20240409
  Serious: No
  Sender: FDA-Public Use
  Company Number: US-Merz Pharmaceuticals GmbH-23-04024

PATIENT
  Sex: Female

DRUGS (1)
  1. XEOMIN [Suspect]
     Active Substance: INCOBOTULINUMTOXINA
     Indication: Torticollis
     Dates: start: 20231020, end: 20231020

REACTIONS (5)
  - Dizziness [Not Recovered/Not Resolved]
  - Dysphagia [Unknown]
  - Injection site pain [Unknown]
  - Myalgia [Unknown]
  - Overdose [Unknown]

NARRATIVE: CASE EVENT DATE: 20230101
